FAERS Safety Report 24990498 (Version 1)
Quarter: 2025Q1

REPORT INFORMATION
  Report Type: Spontaneous
  Country: FR (occurrence: FR)
  Receive Date: 20250220
  Receipt Date: 20250220
  Transmission Date: 20250409
  Serious: Yes (Hospitalization)
  Sender: PFIZER
  Company Number: None

PATIENT
  Age: 30 Year
  Sex: Female
  Weight: 76.4 kg

DRUGS (2)
  1. SALAZOPYRINE [Suspect]
     Active Substance: SULFASALAZINE
     Indication: Ankylosing spondylitis
     Dosage: 2000 MG, 1X/DAY
     Route: 048
     Dates: start: 20241204, end: 20241230
  2. COLCHICINE\OPIUM\TIEMONIUM METHYLSULFATE [Suspect]
     Active Substance: COLCHICINE\OPIUM\TIEMONIUM METHYLSULFATE
     Indication: Ankylosing spondylitis
     Dosage: 1 DF, 1X/DAY
     Route: 048
     Dates: start: 20241204, end: 20241230

REACTIONS (4)
  - Rash [Recovered/Resolved]
  - Hepatic cytolysis [Recovered/Resolved]
  - Drug reaction with eosinophilia and systemic symptoms [Recovered/Resolved]
  - Off label use [Unknown]

NARRATIVE: CASE EVENT DATE: 20241204
